FAERS Safety Report 21773683 (Version 1)
Quarter: 2022Q4

REPORT INFORMATION
  Report Type: Spontaneous
  Country: DE (occurrence: DE)
  Receive Date: 20221223
  Receipt Date: 20221223
  Transmission Date: 20230113
  Serious: Yes (Other)
  Sender: FDA-Public Use
  Company Number: DE-BAXTER-2022BAX031344

PATIENT

DRUGS (27)
  1. DOXORUBICIN [Suspect]
     Active Substance: DOXORUBICIN
     Indication: Plasma cell myeloma
     Dosage: FIFTH LINE TREATMENT
     Route: 065
     Dates: start: 20220618, end: 20220621
  2. CYCLOPHOSPHAMIDE [Suspect]
     Active Substance: CYCLOPHOSPHAMIDE
     Indication: Plasma cell myeloma
     Dosage: FIRST LINE TREATMENT
     Route: 065
     Dates: start: 20180216, end: 20180709
  3. CYCLOPHOSPHAMIDE [Suspect]
     Active Substance: CYCLOPHOSPHAMIDE
     Dosage: FIFTH LINE TREATMENT
     Route: 065
     Dates: start: 20220618, end: 20220621
  4. BORTEZOMIB [Suspect]
     Active Substance: BORTEZOMIB
     Indication: Plasma cell myeloma
     Dosage: FIRST LINE TREATMENT
     Route: 065
     Dates: start: 20180216, end: 20180709
  5. LENALIDOMIDE [Suspect]
     Active Substance: LENALIDOMIDE
     Indication: Plasma cell myeloma
     Dosage: FIRST LINE TREATMENT
     Route: 065
     Dates: start: 20180216, end: 20180709
  6. MELPHALAN [Suspect]
     Active Substance: MELPHALAN
     Indication: Plasma cell myeloma
     Dosage: FIRST LINE TREATMENT
     Route: 065
     Dates: start: 20180216, end: 20180709
  7. MELPHALAN [Suspect]
     Active Substance: MELPHALAN
     Dosage: SECOND LINE TREATMENT
     Route: 065
     Dates: start: 20200911
  8. DEXAMETHASONE [Suspect]
     Active Substance: DEXAMETHASONE
     Indication: Plasma cell myeloma
     Dosage: FIRST LINE TREATMENT
     Route: 065
     Dates: start: 20180216, end: 20180709
  9. DEXAMETHASONE [Suspect]
     Active Substance: DEXAMETHASONE
     Dosage: SECOND LINE TREATMENT
     Route: 065
     Dates: start: 20200911
  10. DEXAMETHASONE [Suspect]
     Active Substance: DEXAMETHASONE
     Dosage: THIRD LINE TREATMENT
     Route: 065
     Dates: start: 20220323, end: 20220504
  11. DEXAMETHASONE [Suspect]
     Active Substance: DEXAMETHASONE
     Dosage: FOURTH LINE TREATMENT
     Route: 065
     Dates: start: 20220420, end: 20220517
  12. DEXAMETHASONE [Suspect]
     Active Substance: DEXAMETHASONE
     Dosage: FIFTH LINE TREATMENT
     Route: 065
     Dates: start: 20220618, end: 20220621
  13. DARATUMUMAB [Suspect]
     Active Substance: DARATUMUMAB
     Indication: Plasma cell myeloma
     Dosage: SECOND LINE TREATMENT
     Route: 065
     Dates: start: 20200911
  14. DARATUMUMAB [Suspect]
     Active Substance: DARATUMUMAB
     Indication: Meningeal disorder
     Dosage: FOURTH LINE TREATMENT
     Route: 065
     Dates: start: 20220420, end: 20220517
  15. DARATUMUMAB [Suspect]
     Active Substance: DARATUMUMAB
     Dosage: FIFTH LINE TREATMENT
     Route: 065
     Dates: start: 20220618, end: 20220621
  16. METHOTREXATE [Suspect]
     Active Substance: METHOTREXATE
     Indication: Plasma cell myeloma
     Dosage: SECOND LINE TREATMENT
     Route: 065
     Dates: start: 20200911
  17. METHOTREXATE [Suspect]
     Active Substance: METHOTREXATE
     Indication: Meningeal disorder
  18. CYTARABINE [Suspect]
     Active Substance: CYTARABINE
     Indication: Plasma cell myeloma
     Dosage: SECOND LINE TREATMENT
     Route: 065
     Dates: start: 20200911
  19. CYTARABINE [Suspect]
     Active Substance: CYTARABINE
     Indication: Meningeal disorder
  20. THIOTEPA [Suspect]
     Active Substance: THIOTEPA
     Indication: Plasma cell myeloma
     Dosage: SECOND LINE TREATMENT
     Route: 065
     Dates: start: 20200911
  21. THIOTEPA [Suspect]
     Active Substance: THIOTEPA
     Indication: Meningeal disorder
  22. CARFILZOMIB [Suspect]
     Active Substance: CARFILZOMIB
     Indication: Plasma cell myeloma
     Dosage: THIRD LINE TREATMENT
     Route: 065
     Dates: start: 20220323, end: 20220504
  23. CARFILZOMIB [Suspect]
     Active Substance: CARFILZOMIB
     Dosage: FOURTH LINE TREATMENT
     Route: 065
     Dates: start: 20220420, end: 20220517
  24. ISATUXIMAB [Suspect]
     Active Substance: ISATUXIMAB
     Indication: Plasma cell myeloma
     Dosage: THIRD LINE TREATMENT
     Route: 065
     Dates: start: 20220323, end: 20220504
  25. CISPLATIN [Suspect]
     Active Substance: CISPLATIN
     Indication: Plasma cell myeloma
     Dosage: FIFTH LINE TREATMENT
     Route: 065
     Dates: start: 20220618, end: 20220621
  26. ETOPOSIDE [Suspect]
     Active Substance: ETOPOSIDE
     Indication: Plasma cell myeloma
     Dosage: FIFTH LINE TREATMENT
     Route: 065
     Dates: start: 20220618, end: 20220621
  27. GENETICALLY-MODIFIED AUTOLOGOUS T CELLS NOS [Suspect]
     Active Substance: GENETICALLY-MODIFIED AUTOLOGOUS T CELLS NOS
     Indication: Plasma cell myeloma
     Dosage: BCMA-TARGETED, SIXTH LINE TREATMENT
     Route: 065
     Dates: start: 20220713, end: 20220718

REACTIONS (2)
  - Plasma cell myeloma refractory [Unknown]
  - Disease progression [Unknown]
